FAERS Safety Report 23894099 (Version 1)
Quarter: 2024Q2

REPORT INFORMATION
  Report Type: Spontaneous
  Country: US (occurrence: None)
  Receive Date: 20240524
  Receipt Date: 20240524
  Transmission Date: 20240716
  Serious: No
  Sender: FDA-Public Use
  Company Number: US-ROCHE-3450701

PATIENT
  Sex: Female
  Weight: 54.48 kg

DRUGS (9)
  1. OCREVUS [Suspect]
     Active Substance: OCRELIZUMAB
     Indication: Relapsing-remitting multiple sclerosis
     Dosage: NEXT INFUSION IN 26-NOV-2023
     Route: 065
     Dates: start: 20230518
  2. OCREVUS [Suspect]
     Active Substance: OCRELIZUMAB
     Route: 065
     Dates: start: 2019
  3. BACLOFEN [Concomitant]
     Active Substance: BACLOFEN
  4. LYRICA [Concomitant]
     Active Substance: PREGABALIN
  5. ZYRTEC [Concomitant]
     Active Substance: CETIRIZINE HYDROCHLORIDE
  6. VITAMIN D3 [Concomitant]
     Active Substance: CHOLECALCIFEROL
  7. VILAZODONE [Concomitant]
     Active Substance: VILAZODONE
  8. BIOTIN [Concomitant]
     Active Substance: BIOTIN
  9. KESIMPTA [Concomitant]
     Active Substance: OFATUMUMAB

REACTIONS (3)
  - Pain [Not Recovered/Not Resolved]
  - Alopecia [Unknown]
  - Multiple sclerosis pseudo relapse [Unknown]
